FAERS Safety Report 9780564 (Version 1)
Quarter: 2013Q4

REPORT INFORMATION
  Report Type: Spontaneous
  Country: US (occurrence: US)
  Receive Date: 20131224
  Receipt Date: 20131224
  Transmission Date: 20140711
  Serious: No
  Sender: FDA-Public Use
  Company Number: US-009507513-1312USA009934

PATIENT
  Sex: Female

DRUGS (3)
  1. EMEND [Suspect]
     Route: 042
  2. DEXAMETHASONE [Concomitant]
  3. ONDANSETRON [Concomitant]

REACTIONS (2)
  - Dyspnoea [Unknown]
  - Flushing [Unknown]
